FAERS Safety Report 9904842 (Version 1)
Quarter: 2014Q1

REPORT INFORMATION
  Report Type: Spontaneous
  Country: US (occurrence: None)
  Receive Date: 20140210
  Receipt Date: 20140210
  Transmission Date: 20141002
  Serious: Yes (Other)
  Sender: FDA-Public Use
  Company Number: 2014P1001156

PATIENT
  Age: 32 Year
  Sex: Female

DRUGS (2)
  1. HYDROXYCHLOROQUINE [Suspect]
  2. DIURETICS [Concomitant]

REACTIONS (7)
  - Dyspnoea [None]
  - Dyspnoea exertional [None]
  - Orthopnoea [None]
  - Arthralgia [None]
  - Anaemia [None]
  - Cardiomyopathy [None]
  - Cardiotoxicity [None]
